FAERS Safety Report 6265888-0 (Version None)
Quarter: 2009Q3

REPORT INFORMATION
  Report Type: 
  Country: None (occurrence: None)
  Receive Date: 20090709
  Receipt Date: 20090709
  Transmission Date: 20100115
  Serious: Yes (Life-Threatening, Hospitalization, Other)
  Sender: FDA-Public Use
  Company Number: None

PATIENT
  Sex: Female
  Weight: 72.5755 kg

DRUGS (1)
  1. LISINOPRIL AND HYDROCHLOROTHIAZIDE [Suspect]
     Indication: HYPERTENSION
     Dosage: 2 TABLETS DAILY PO
     Route: 048
     Dates: start: 20071027, end: 20090525

REACTIONS (7)
  - APHASIA [None]
  - BALANCE DISORDER [None]
  - COMA [None]
  - MEMORY IMPAIRMENT [None]
  - NOSOCOMIAL INFECTION [None]
  - SWOLLEN TONGUE [None]
  - URINARY TRACT INFECTION [None]
